FAERS Safety Report 9735711 (Version 1)
Quarter: 2013Q4

REPORT INFORMATION
  Report Type: Spontaneous
  Country: US (occurrence: None)
  Receive Date: 20131205
  Receipt Date: 20131205
  Transmission Date: 20140711
  Serious: Yes (Death)
  Sender: FDA-Public Use
  Company Number: None

PATIENT
  Age: 64 Year
  Sex: Female

DRUGS (13)
  1. VICTOZA [Suspect]
     Indication: TYPE 2 DIABETES MELLITUS
     Route: 058
     Dates: end: 20130707
  2. EXFORGE [Concomitant]
  3. ASA [Concomitant]
  4. CELEXA [Concomitant]
  5. CQ10 [Concomitant]
  6. WELCHOL [Concomitant]
  7. VYTORIN [Concomitant]
  8. FISH OIL [Concomitant]
  9. AMARYL [Concomitant]
  10. SYNTHROID [Concomitant]
  11. MULTIVITAMIN [Concomitant]
  12. ACTOPLUS [Concomitant]
  13. EVISTA [Concomitant]

REACTIONS (1)
  - Pancreatitis [None]
